FAERS Safety Report 5479056-3 (Version None)
Quarter: 2007Q4

REPORT INFORMATION
  Report Type: 
  Country: None (occurrence: None)
  Receive Date: 20071002
  Receipt Date: 20070918
  Transmission Date: 20080405
  Serious: Yes (Other)
  Sender: FDA-Public Use
  Company Number: 2007BI020235

PATIENT
  Age: 51 Year
  Sex: Female

DRUGS (2)
  1. NATALIZUMAB [Suspect]
     Indication: MULTIPLE SCLEROSIS
     Dosage: 300 MG;QM;IV
     Route: 042
     Dates: start: 20070417
  2. AVONEX [Concomitant]

REACTIONS (3)
  - CATHETER THROMBOSIS [None]
  - INFUSION SITE PAIN [None]
  - SWELLING [None]
